FAERS Safety Report 9078334 (Version 2)
Quarter: 2013Q1

REPORT INFORMATION
  Report Type: Spontaneous
  Country: DE (occurrence: DE)
  Receive Date: 20130130
  Receipt Date: 20130228
  Transmission Date: 20140127
  Serious: Yes (Other)
  Sender: FDA-Public Use
  Company Number: DE-JNJFOC-20130112174

PATIENT
  Sex: Male
  Weight: 80 kg

DRUGS (1)
  1. SEMPERA [Suspect]
     Indication: ONYCHOMYCOSIS
     Route: 048
     Dates: start: 20121205

REACTIONS (4)
  - Renal pain [Recovering/Resolving]
  - Upper respiratory tract infection [Recovering/Resolving]
  - Tinnitus [Recovering/Resolving]
  - Abdominal pain [Recovering/Resolving]
